FAERS Safety Report 18634160 (Version 3)
Quarter: 2021Q1

REPORT INFORMATION
  Report Type: Report from Study
  Country: US (occurrence: US)
  Receive Date: 20201218
  Receipt Date: 20210115
  Transmission Date: 20210419
  Serious: Yes (Death, Other)
  Sender: FDA-Public Use
  Company Number: US-GLAXOSMITHKLINE-US2020AMR197674

PATIENT
  Age: 71 Year
  Sex: Female

DRUGS (4)
  1. NIRAPARIB [Suspect]
     Active Substance: NIRAPARIB
     Indication: OVARIAN CANCER
     Dosage: 200 MG, QD
     Dates: start: 20200922
  2. NIRAPARIB [Suspect]
     Active Substance: NIRAPARIB
     Dosage: 200 MG, QD
     Dates: start: 202009
  3. NIRAPARIB [Suspect]
     Active Substance: NIRAPARIB
     Dosage: 200 MG, QD
     Dates: start: 2020
  4. NIRAPARIB [Suspect]
     Active Substance: NIRAPARIB
     Dosage: 200 MG, QD
     Dates: start: 20201016

REACTIONS (16)
  - Drug intolerance [Unknown]
  - Death [Fatal]
  - Insomnia [Not Recovered/Not Resolved]
  - Anaemia [Unknown]
  - Drug ineffective [Unknown]
  - Pain [Unknown]
  - Blood pressure increased [Not Recovered/Not Resolved]
  - Nausea [Not Recovered/Not Resolved]
  - Tumour marker increased [Unknown]
  - Vomiting [Unknown]
  - Oesophageal carcinoma [Unknown]
  - Constipation [Unknown]
  - Headache [Unknown]
  - Off label use [Unknown]
  - Abdominal distension [Unknown]
  - Dysphagia [Unknown]

NARRATIVE: CASE EVENT DATE: 20210110
